FAERS Safety Report 9567795 (Version 1)
Quarter: 2013Q3

REPORT INFORMATION
  Report Type: Spontaneous
  Country: US (occurrence: US)
  Receive Date: 20130930
  Receipt Date: 20130930
  Transmission Date: 20140515
  Serious: No
  Sender: FDA-Public Use
  Company Number: US-AMGEN-USASP2013022911

PATIENT
  Age: 33 Year
  Sex: Female
  Weight: 63.49 kg

DRUGS (14)
  1. ENBREL [Suspect]
     Indication: PRODUCT USED FOR UNKNOWN INDICATION
     Dosage: 50 MG, 2 TIMES/WK
     Route: 058
     Dates: start: 2005
  2. POTASSIUM [Concomitant]
     Dosage: 75 MG, UNK
  3. B COMPLEX                          /00212701/ [Concomitant]
     Dosage: UNK
  4. VITAMIN C                          /00008001/ [Concomitant]
     Dosage: 500 MG, UNK
  5. MULTIVITAMINS, PLAIN [Concomitant]
     Dosage: UNK
  6. LITHIUM CARBONATE [Concomitant]
     Dosage: 150 MG, UNK
  7. GLUCOSAMINE [Concomitant]
     Dosage: 1000 MG, UNK
  8. MSM [Concomitant]
     Dosage: 500 MG, UNK
  9. KLONOPIN [Concomitant]
     Dosage: 0.5 MG, UNK
  10. ZANTAC [Concomitant]
     Dosage: 150 MG, UNK
  11. TACLONEX [Concomitant]
     Dosage: UNK
  12. EFFEXOR [Concomitant]
     Dosage: 75 MG, UNK
  13. SEROQUEL [Concomitant]
     Dosage: 100 MG, UNK
  14. IBUPROFEN [Concomitant]
     Dosage: 200 MG, UNK

REACTIONS (2)
  - Therapeutic response decreased [Unknown]
  - Psoriasis [Unknown]
